FAERS Safety Report 23251839 (Version 1)
Quarter: 2023Q4

REPORT INFORMATION
  Report Type: Spontaneous
  Country: US (occurrence: None)
  Receive Date: 20231130
  Receipt Date: 20231130
  Transmission Date: 20240110
  Serious: Yes (Hospitalization)
  Sender: FDA-Public Use
  Company Number: None

PATIENT
  Sex: Male

DRUGS (2)
  1. TACROLIMUS [Suspect]
     Active Substance: TACROLIMUS
     Indication: Heart transplant
     Dosage: OTHER FREQUENCY : 2CAPSAM1CAPEVENING;?TAKE 2 CAPSULES BY MOUTH IN THE MORNING AND 1 CAPSULE EVERY EV
     Route: 048
  2. EVEROLIMUS [Concomitant]

REACTIONS (3)
  - Drug hypersensitivity [None]
  - Thrombosis [None]
  - Therapy cessation [None]
